FAERS Safety Report 14471858 (Version 1)
Quarter: 2018Q1

REPORT INFORMATION
  Report Type: Spontaneous
  Country: US (occurrence: US)
  Receive Date: 20180131
  Receipt Date: 20180131
  Transmission Date: 20180509
  Serious: Yes (Other)
  Sender: FDA-Public Use
  Company Number: US-TAIHO ONCOLOGY INC-EU-2018-00095

PATIENT
  Sex: Female

DRUGS (18)
  1. LONSURF [Suspect]
     Active Substance: TIPIRACIL HYDROCHLORIDE\TRIFLURIDINE
     Indication: RECTAL CANCER
     Route: 048
     Dates: start: 20170515
  2. SENNA ALEXANDRINA [Concomitant]
     Active Substance: SENNA LEAF
     Dosage: NI
  3. PROCHLORPERAZINE. [Concomitant]
     Active Substance: PROCHLORPERAZINE
     Dosage: NI
  4. CLARITIN [Concomitant]
     Active Substance: LORATADINE
     Dosage: NI
  5. SIMETHICONE (DIMETHICONE) [Concomitant]
     Active Substance: DIMETHICONE
     Dosage: NI
  6. TYLENOL [Concomitant]
     Active Substance: ACETAMINOPHEN
     Dosage: NI
  7. IRON [Concomitant]
     Active Substance: IRON
     Dosage: NI
  8. AMLODIPINE [Concomitant]
     Active Substance: AMLODIPINE BESYLATE
     Dosage: NI
  9. ESOMEPRAZOLE [Concomitant]
     Active Substance: ESOMEPRAZOLE
     Dosage: NI
  10. LIPITOR [Concomitant]
     Active Substance: ATORVASTATIN CALCIUM
     Dosage: NI
  11. DEXTROMETHORPHAN [Concomitant]
     Active Substance: DEXTROMETHORPHAN
     Dosage: NI
  12. MAGNESIUM [Concomitant]
     Active Substance: MAGNESIUM
     Dosage: NI
  13. LIDOCAINE/PRILOCAINE [Concomitant]
     Dosage: NI
  14. DOXYLAMINE [Concomitant]
     Active Substance: DOXYLAMINE
     Dosage: NI
  15. PROAIR HFA [Concomitant]
     Active Substance: ALBUTEROL SULFATE
     Dosage: NI
  16. PYRIDOXINE HYDROCHLORIDE. [Concomitant]
     Active Substance: PYRIDOXINE HYDROCHLORIDE
     Dosage: NI
  17. FLUTICASONE. [Concomitant]
     Active Substance: FLUTICASONE
     Dosage: NI
  18. CURCUMA LONGA RHIZOME [Concomitant]
     Active Substance: HERBALS\TURMERIC
     Dosage: NI

REACTIONS (6)
  - Dysstasia [Unknown]
  - General physical health deterioration [Unknown]
  - Intestinal obstruction [Unknown]
  - Contusion [Unknown]
  - Muscular weakness [Unknown]
  - Pain in extremity [Unknown]

NARRATIVE: CASE EVENT DATE: 2017
